FAERS Safety Report 23214508 (Version 4)
Quarter: 2024Q3

REPORT INFORMATION
  Report Type: Spontaneous
  Country: US (occurrence: US)
  Receive Date: 20231121
  Receipt Date: 20240919
  Transmission Date: 20241016
  Serious: No
  Sender: INCYTE
  Company Number: US-INCYTE CORPORATION-2023IN011983

PATIENT

DRUGS (3)
  1. JAKAFI [Suspect]
     Active Substance: RUXOLITINIB
     Indication: Myelofibrosis
     Dosage: 10 MILLIGRAM, BID
     Route: 048
     Dates: start: 20230710
  2. JAKAFI [Suspect]
     Active Substance: RUXOLITINIB
     Dosage: 10 MILLIGRAM, BID
     Route: 048
     Dates: start: 20230710
  3. JAKAFI [Suspect]
     Active Substance: RUXOLITINIB
     Dosage: 10MG DAILY ON MONDAY, WEDNESDAY, AND FRIDAY AND 20MG DAILY ON TUESDAY, THURSDAY, SATURDAY, AND SUNDA
     Route: 048
     Dates: start: 20230710

REACTIONS (9)
  - Alopecia [Unknown]
  - Hair texture abnormal [Unknown]
  - Fatigue [Unknown]
  - Rotator cuff syndrome [Unknown]
  - Pain [Unknown]
  - Paraesthesia [Unknown]
  - Decreased activity [Unknown]
  - General physical health deterioration [Unknown]
  - Product dose omission issue [Unknown]

NARRATIVE: CASE EVENT DATE: 20230101
